FAERS Safety Report 6475075-9 (Version None)
Quarter: 2009Q4

REPORT INFORMATION
  Report Type: 
  Country: None (occurrence: None)
  Receive Date: 20091204
  Receipt Date: 20090508
  Transmission Date: 20100525
  Serious: Yes (Death, Life-Threatening, Hospitalization, Other)
  Sender: FDA-Public Use
  Company Number: US-ELI_LILLY_AND_COMPANY-US200902007349

PATIENT
  Age: 79 Year
  Sex: Male

DRUGS (3)
  1. ZYPREXA [Suspect]
     Dosage: UNK, UNK
     Dates: start: 20080201
  2. GLYBURIDE (MICRONIZED) [Concomitant]
     Dosage: 2.5 MG, UNK
  3. ASPIRIN [Concomitant]

REACTIONS (3)
  - BRADYCARDIA [None]
  - CEREBROVASCULAR ACCIDENT [None]
  - UNRESPONSIVE TO STIMULI [None]
